FAERS Safety Report 20032101 (Version 2)
Quarter: 2021Q4

REPORT INFORMATION
  Report Type: Spontaneous
  Country: US (occurrence: US)
  Receive Date: 20211103
  Receipt Date: 20211112
  Transmission Date: 20220303
  Serious: Yes (Other)
  Sender: FDA-Public Use
  Company Number: US-PFIZER INC-202101351821

PATIENT
  Age: 64 Year
  Sex: Male
  Weight: 103.5 kg

DRUGS (5)
  1. INLYTA [Suspect]
     Active Substance: AXITINIB
     Indication: Renal cancer
     Dosage: 5 MG, 2X/DAY
     Route: 048
     Dates: start: 20210826
  2. ASPIRIN [Concomitant]
     Active Substance: ASPIRIN
  3. KEYTRUDA [Concomitant]
     Active Substance: PEMBROLIZUMAB
  4. HYDRALAZINE [Concomitant]
     Active Substance: HYDRALAZINE HYDROCHLORIDE
  5. CLONIDINE [Concomitant]
     Active Substance: CLONIDINE

REACTIONS (4)
  - Hypertension [Recovering/Resolving]
  - Creatinine renal clearance decreased [Unknown]
  - Diarrhoea [Unknown]
  - Abdominal discomfort [Unknown]
